FAERS Safety Report 16843511 (Version 1)
Quarter: 2019Q3

REPORT INFORMATION
  Report Type: Spontaneous
  Country: FR (occurrence: FR)
  Receive Date: 20190924
  Receipt Date: 20190924
  Transmission Date: 20191005
  Serious: Yes (Hospitalization)
  Sender: FDA-Public Use
  Company Number: FR-TEVA-2019-FR-1110867

PATIENT
  Age: 74 Year
  Sex: Female
  Weight: 102 kg

DRUGS (14)
  1. CEFTAZIDIME. [Suspect]
     Active Substance: CEFTAZIDIME
     Indication: ARTHRITIS INFECTIVE
     Dosage: 6 GRAM
     Route: 042
     Dates: start: 20190730, end: 20190809
  2. BISOPROLOL (HEMIFUMARATE DE) [Concomitant]
     Active Substance: BISOPROLOL FUMARATE
  3. NORMACOL [Concomitant]
     Active Substance: HERBALS\KARAYA GUM
  4. ULTRA LEVURE [Concomitant]
     Active Substance: SACCHAROMYCES CEREVISIAE
  5. LEVOTHYROX [Concomitant]
     Active Substance: LEVOTHYROXINE
  6. FUNGIZONE [Concomitant]
     Active Substance: AMPHOTERICIN B
  7. CIPROFLOXACINE [Suspect]
     Active Substance: CIPROFLOXACIN
     Indication: ARTHRITIS INFECTIVE
     Dosage: 1 DF
     Route: 042
     Dates: start: 20190807, end: 20190809
  8. SPECIAFOLDINE [Concomitant]
     Active Substance: FOLIC ACID
  9. MOVICOL [Concomitant]
     Active Substance: POLYETHYLENE GLYCOL 3350\POTASSIUM CHLORIDE\SODIUM BICARBONATE\SODIUM CHLORIDE
  10. METFORMINE [Concomitant]
     Active Substance: METFORMIN HYDROCHLORIDE
  11. PANTOPRAZOLE [Concomitant]
     Active Substance: PANTOPRAZOLE
  12. IRBESARTAN. [Concomitant]
     Active Substance: IRBESARTAN
  13. LOVENOX [Concomitant]
     Active Substance: ENOXAPARIN SODIUM
  14. FUMAFER [Concomitant]
     Active Substance: FERROUS FUMARATE

REACTIONS (1)
  - Encephalopathy [Recovered/Resolved]

NARRATIVE: CASE EVENT DATE: 20190808
